FAERS Safety Report 8305490-X (Version None)
Quarter: 2012Q2

REPORT INFORMATION
  Report Type: 
  Country: None (occurrence: None)
  Receive Date: 20120423
  Receipt Date: 20120416
  Transmission Date: 20120825
  Serious: Yes (Other)
  Sender: FDA-Public Use
  Company Number: US-GLAXOSMITHKLINE-A0973848A

PATIENT
  Age: 23 Year
  Sex: Female

DRUGS (6)
  1. BYSTOLIC [Concomitant]
  2. PERCOCET [Concomitant]
  3. FIORICET [Concomitant]
  4. LAMICTAL [Suspect]
     Indication: EPILEPSY
     Dosage: 100MG TWICE PER DAY
     Route: 048
     Dates: start: 20030101
  5. LORTAB [Concomitant]
  6. DOXYCYCLINE [Concomitant]

REACTIONS (11)
  - DECREASED APPETITE [None]
  - TREATMENT NONCOMPLIANCE [None]
  - OVERDOSE [None]
  - PAIN [None]
  - MIGRAINE [None]
  - STRESS [None]
  - CONVULSION [None]
  - BEDRIDDEN [None]
  - CRYING [None]
  - HEADACHE [None]
  - ILL-DEFINED DISORDER [None]
